FAERS Safety Report 23574884 (Version 1)
Quarter: 2024Q1

REPORT INFORMATION
  Report Type: Spontaneous
  Country: US (occurrence: US)
  Receive Date: 20240228
  Receipt Date: 20240228
  Transmission Date: 20240409
  Serious: No
  Sender: FDA-Public Use
  Company Number: US-P+L Developments of Newyork Corporation-2153782

PATIENT
  Sex: Female

DRUGS (1)
  1. NICOTINE POLACRILEX [Suspect]
     Active Substance: NICOTINE
     Route: 048

REACTIONS (2)
  - Oral pain [Unknown]
  - Stomatitis [Unknown]

NARRATIVE: CASE EVENT DATE: 20240127
